FAERS Safety Report 10226096 (Version 1)
Quarter: 2014Q2

REPORT INFORMATION
  Report Type: Spontaneous
  Country: US (occurrence: US)
  Receive Date: 20140609
  Receipt Date: 20140609
  Transmission Date: 20141212
  Serious: No
  Sender: FDA-Public Use
  Company Number: US-ASTELLAS-2014US003387

PATIENT
  Age: 84 Year
  Sex: Male

DRUGS (1)
  1. XTANDI [Suspect]
     Indication: MANTLE CELL LYMPHOMA
     Dosage: 160 MG, DAILY
     Route: 048
     Dates: start: 20130711, end: 20140331

REACTIONS (3)
  - Off label use [Unknown]
  - Asthenia [Unknown]
  - Prostatic specific antigen decreased [Unknown]
